FAERS Safety Report 14243396 (Version 1)
Quarter: 2017Q4

REPORT INFORMATION
  Report Type: Spontaneous
  Country: IT (occurrence: IT)
  Receive Date: 20171201
  Receipt Date: 20171201
  Transmission Date: 20180321
  Serious: Yes (Hospitalization, Other)
  Sender: FDA-Public Use
  Company Number: IT-PFIZER INC-2017504457

PATIENT
  Age: 33 Year
  Sex: Female

DRUGS (6)
  1. PREDNISONE. [Suspect]
     Active Substance: PREDNISONE
     Dosage: UNK
     Dates: start: 20170808, end: 20171014
  2. RITUXIMAB. [Suspect]
     Active Substance: RITUXIMAB
     Dosage: UNK
     Dates: start: 20170808, end: 20171014
  3. ETOPOSIDE. [Suspect]
     Active Substance: ETOPOSIDE
     Dosage: UNK
     Dates: start: 20170808, end: 20171014
  4. DOXORUBICIN HCL [Suspect]
     Active Substance: DOXORUBICIN HYDROCHLORIDE
     Dosage: UNK
     Dates: start: 20170808, end: 20171014
  5. VINCRISTINE SULFATE. [Suspect]
     Active Substance: VINCRISTINE SULFATE
     Dosage: UNK
     Dates: start: 20170808, end: 20171014
  6. CYCLOPHOSPHAMIDE. [Suspect]
     Active Substance: CYCLOPHOSPHAMIDE
     Dosage: UNK
     Dates: start: 20170808, end: 20171014

REACTIONS (18)
  - Sepsis [Unknown]
  - Back pain [Unknown]
  - Procalcitonin increased [Unknown]
  - Hyperpyrexia [Recovered/Resolved]
  - Alanine aminotransferase increased [Unknown]
  - Aplasia [Unknown]
  - Rhinovirus infection [Unknown]
  - Hepatic enzyme increased [Unknown]
  - White blood cell count decreased [Recovered/Resolved]
  - Hypotension [Unknown]
  - Hidradenitis [Unknown]
  - Presyncope [Unknown]
  - Haemoglobin decreased [Recovered/Resolved]
  - Gamma-glutamyltransferase increased [Unknown]
  - C-reactive protein increased [Unknown]
  - Erythema [Unknown]
  - Hepatic necrosis [Unknown]
  - Enterovirus test positive [Unknown]

NARRATIVE: CASE EVENT DATE: 201708
